FAERS Safety Report 20809642 (Version 1)
Quarter: 2022Q2

REPORT INFORMATION
  Report Type: Spontaneous
  Country: IN (occurrence: IN)
  Receive Date: 20220510
  Receipt Date: 20220510
  Transmission Date: 20220721
  Serious: Yes (Other)
  Sender: FDA-Public Use
  Company Number: IN-PFIZER INC-202200589497

PATIENT
  Age: 65 Year
  Sex: Female

DRUGS (3)
  1. PALBOCICLIB [Suspect]
     Active Substance: PALBOCICLIB
     Indication: Breast cancer metastatic
     Dosage: 125 MG, 1X/DAY
     Route: 048
     Dates: start: 20211229
  2. FULVESTRANT [Concomitant]
     Active Substance: FULVESTRANT
     Indication: Breast cancer metastatic
     Dosage: UNK
  3. NEOSPORIN EYE [Concomitant]
     Dosage: 1-0-0 X 3X/DAY (R/S MONDAY/WED, AS REPORTED)

REACTIONS (9)
  - Diabetes mellitus [Unknown]
  - Nasal disorder [Unknown]
  - Rhinorrhoea [Unknown]
  - Sneezing [Unknown]
  - Nasal turbinate hypertrophy [Unknown]
  - Neoplasm progression [Unknown]
  - Oesophageal disorder [Unknown]
  - Rash [Unknown]
  - Dyspnoea exertional [Unknown]

NARRATIVE: CASE EVENT DATE: 20220101
